FAERS Safety Report 9044923 (Version 1)
Quarter: 2013Q1

REPORT INFORMATION
  Report Type: Report from Study
  Country: JP (occurrence: JP)
  Receive Date: 20130130
  Receipt Date: 20130130
  Transmission Date: 20140127
  Serious: Yes (Other)
  Sender: FDA-Public Use
  Company Number: JP-GLAXOSMITHKLINE-B0860845A

PATIENT
  Age: 74 None
  Sex: Male
  Weight: 70 kg

DRUGS (16)
  1. REVOLADE [Suspect]
     Indication: IDIOPATHIC THROMBOCYTOPENIC PURPURA
     Route: 048
     Dates: start: 20120518, end: 20120523
  2. REVOLADE [Suspect]
     Indication: IDIOPATHIC THROMBOCYTOPENIC PURPURA
     Route: 048
     Dates: start: 20120524, end: 20120529
  3. REVOLADE [Suspect]
     Indication: IDIOPATHIC THROMBOCYTOPENIC PURPURA
     Route: 048
     Dates: start: 20120530, end: 20120606
  4. REVOLADE [Suspect]
     Indication: IDIOPATHIC THROMBOCYTOPENIC PURPURA
     Route: 048
     Dates: start: 20120607, end: 20120805
  5. KALIMATE [Concomitant]
     Route: 048
     Dates: end: 20120518
  6. KALIMATE [Concomitant]
     Route: 048
     Dates: start: 20120519, end: 20120620
  7. PROMAC [Concomitant]
     Indication: PROPHYLAXIS
     Route: 048
  8. MAGMITT [Concomitant]
     Route: 048
  9. BAKTAR [Concomitant]
     Indication: PROPHYLAXIS
     Route: 048
  10. PREDONINE [Concomitant]
     Indication: IDIOPATHIC THROMBOCYTOPENIC PURPURA
     Route: 048
     Dates: end: 20120521
  11. PREDONINE [Concomitant]
     Indication: IDIOPATHIC THROMBOCYTOPENIC PURPURA
     Route: 048
     Dates: start: 20120522, end: 20120530
  12. PREDONINE [Concomitant]
     Indication: IDIOPATHIC THROMBOCYTOPENIC PURPURA
     Route: 048
     Dates: start: 20120531, end: 20120606
  13. PREDONINE [Concomitant]
     Indication: IDIOPATHIC THROMBOCYTOPENIC PURPURA
     Route: 048
     Dates: start: 20120607, end: 20120613
  14. LAXOBERON [Concomitant]
     Route: 048
     Dates: start: 20120526
  15. HACHIAZULE [Concomitant]
     Indication: PROPHYLAXIS
     Route: 002
     Dates: start: 20120629, end: 20120706
  16. GLYCERIN [Concomitant]
     Indication: PROPHYLAXIS
     Route: 002
     Dates: start: 20120629, end: 20120706

REACTIONS (9)
  - Leukoplakia oral [Recovering/Resolving]
  - Hyperbilirubinaemia [Recovered/Resolved]
  - Pollakiuria [Recovered/Resolved]
  - Diarrhoea [Recovered/Resolved]
  - Gastrointestinal hypermotility [Recovering/Resolving]
  - Malaise [Recovering/Resolving]
  - Pyrexia [Recovering/Resolving]
  - Alanine aminotransferase increased [Recovered/Resolved]
  - Aspartate aminotransferase increased [Recovered/Resolved]
